FAERS Safety Report 10208403 (Version 1)
Quarter: 2014Q2

REPORT INFORMATION
  Report Type: Other
  Country: JP (occurrence: JP)
  Receive Date: 20140530
  Receipt Date: 20140530
  Transmission Date: 20141212
  Serious: Yes (Other)
  Sender: FDA-Public Use
  Company Number: JP-BRISTOL-MYERS SQUIBB COMPANY-20863643

PATIENT
  Age: 68 Year
  Sex: Female

DRUGS (1)
  1. CETUXIMAB [Suspect]
     Indication: COLON CANCER

REACTIONS (3)
  - Emotional disorder [Recovered/Resolved]
  - Social problem [Recovered/Resolved]
  - Dermatitis acneiform [Recovering/Resolving]
